FAERS Safety Report 18135008 (Version 1)
Quarter: 2020Q3

REPORT INFORMATION
  Report Type: Spontaneous
  Country: US (occurrence: US)
  Receive Date: 20200811
  Receipt Date: 20200811
  Transmission Date: 20201103
  Serious: Yes (Death, Hospitalization)
  Sender: FDA-Public Use
  Company Number: None

PATIENT
  Age: 63 Year
  Sex: Male
  Weight: 55.97 kg

DRUGS (2)
  1. DAUNORUBICIN [Suspect]
     Active Substance: DAUNORUBICIN
     Dates: end: 20200116
  2. CYTARABINE (63878) [Suspect]
     Active Substance: CYTARABINE
     Dates: end: 20200120

REACTIONS (11)
  - Chills [None]
  - Febrile neutropenia [None]
  - Fusobacterium test positive [None]
  - Thrombophlebitis septic [None]
  - Therapy interrupted [None]
  - Pyrexia [None]
  - Hypotension [None]
  - Supraventricular tachycardia [None]
  - Deep vein thrombosis [None]
  - Sepsis [None]
  - Tachycardia [None]

NARRATIVE: CASE EVENT DATE: 20200320
